FAERS Safety Report 25314331 (Version 2)
Quarter: 2025Q2

REPORT INFORMATION
  Report Type: Spontaneous
  Country: US (occurrence: US)
  Receive Date: 20250514
  Receipt Date: 20250604
  Transmission Date: 20250717
  Serious: No
  Sender: GLAXOSMITHKLINE
  Company Number: US-GSK-US2025AMR056748

PATIENT

DRUGS (4)
  1. NUCALA [Suspect]
     Active Substance: MEPOLIZUMAB
     Indication: Patellofemoral pain syndrome
  2. NUCALA [Suspect]
     Active Substance: MEPOLIZUMAB
     Indication: Illness
  3. NUCALA [Suspect]
     Active Substance: MEPOLIZUMAB
     Indication: Arteriosclerosis coronary artery
  4. NUCALA [Suspect]
     Active Substance: MEPOLIZUMAB
     Indication: Angina pectoris

REACTIONS (1)
  - Off label use [Unknown]
